FAERS Safety Report 18706088 (Version 1)
Quarter: 2021Q1

REPORT INFORMATION
  Report Type: Spontaneous
  Country: US (occurrence: US)
  Receive Date: 20210105
  Receipt Date: 20210105
  Transmission Date: 20210419
  Serious: Yes (Other)
  Sender: FDA-Public Use
  Company Number: None

PATIENT
  Age: 59 Year
  Sex: Male

DRUGS (14)
  1. LISINOPRIL. [Concomitant]
     Active Substance: LISINOPRIL
  2. BAQSIMI NASAL [Concomitant]
  3. TADALAFIL. [Concomitant]
     Active Substance: TADALAFIL
  4. HUMULIN R [Concomitant]
     Active Substance: INSULIN HUMAN
  5. SPIRONOLACTONE. [Concomitant]
     Active Substance: SPIRONOLACTONE
  6. HUMULIN N [Concomitant]
     Active Substance: INSULIN HUMAN
  7. METFORMIN [Concomitant]
     Active Substance: METFORMIN HYDROCHLORIDE
  8. BUMETANIDE. [Concomitant]
     Active Substance: BUMETANIDE
  9. ATORVASTATIN [Concomitant]
     Active Substance: ATORVASTATIN
  10. LACTULOSE. [Concomitant]
     Active Substance: LACTULOSE
  11. AMBRISENTAN 5MG TABLETS 30/BO: 5MG [Suspect]
     Active Substance: AMBRISENTAN
     Indication: PULMONARY ARTERIAL HYPERTENSION
     Route: 048
     Dates: start: 20201214, end: 20201222
  12. NADOLOL. [Concomitant]
     Active Substance: NADOLOL
  13. DABIGATRAN [Concomitant]
     Active Substance: DABIGATRAN
  14. FAMOTIDINE. [Concomitant]
     Active Substance: FAMOTIDINE

REACTIONS (2)
  - Peripheral swelling [None]
  - Therapy interrupted [None]

NARRATIVE: CASE EVENT DATE: 20201222
